FAERS Safety Report 9687580 (Version 1)
Quarter: 2013Q4

REPORT INFORMATION
  Report Type: Spontaneous
  Country: US (occurrence: US)
  Receive Date: 20131114
  Receipt Date: 20131114
  Transmission Date: 20140711
  Serious: Yes (Hospitalization)
  Sender: FDA-Public Use
  Company Number: US-AMGEN-USASP2013079816

PATIENT
  Age: 58 Year
  Sex: Female

DRUGS (3)
  1. ENBREL [Suspect]
     Indication: RHEUMATOID ARTHRITIS
     Dosage: 50 MG, QWK
     Route: 065
     Dates: start: 2001
  2. HUMIRA [Concomitant]
     Dosage: UNK
  3. ARAVA [Concomitant]
     Dosage: 10 MG, QD
     Route: 048
     Dates: start: 2002, end: 20120829

REACTIONS (5)
  - Leukaemia [Not Recovered/Not Resolved]
  - Cellulitis [Recovered/Resolved]
  - Osteomyelitis [Recovered/Resolved]
  - Ulcer [Recovered/Resolved]
  - Rheumatoid arthritis [Unknown]
